FAERS Safety Report 12699238 (Version 1)
Quarter: 2016Q3

REPORT INFORMATION
  Report Type: Spontaneous
  Country: CN (occurrence: CN)
  Receive Date: 20160830
  Receipt Date: 20160830
  Transmission Date: 20161109
  Serious: Yes (Other)
  Sender: FDA-Public Use
  Company Number: CN-JNJFOC-20160817359

PATIENT

DRUGS (2)
  1. IBUPROFEN. [Suspect]
     Active Substance: IBUPROFEN
     Indication: PATENT DUCTUS ARTERIOSUS
     Dosage: EVERY 24 HOURS
     Route: 048
  2. IBUPROFEN. [Suspect]
     Active Substance: IBUPROFEN
     Indication: PATENT DUCTUS ARTERIOSUS
     Dosage: 3 DOSE IN TOTAL
     Route: 048

REACTIONS (9)
  - Off label use [Recovering/Resolving]
  - Incorrect route of drug administration [Unknown]
  - Abdominal distension [Recovering/Resolving]
  - Impaired gastric emptying [Recovering/Resolving]
  - Platelet count decreased [Recovered/Resolved]
  - Urine output decreased [Recovering/Resolving]
  - Product use issue [Recovering/Resolving]
  - Therapeutic response unexpected [Unknown]
  - Vomiting [Recovering/Resolving]
